FAERS Safety Report 11667717 (Version 3)
Quarter: 2016Q1

REPORT INFORMATION
  Report Type: Report from Study
  Country: CA (occurrence: CA)
  Receive Date: 20151027
  Receipt Date: 20160208
  Transmission Date: 20160525
  Serious: Yes (Other)
  Sender: FDA-Public Use
  Company Number: CA-TAKEDA-2015TUS014701

PATIENT
  Age: 45 Year
  Sex: Male
  Weight: 112.4 kg

DRUGS (10)
  1. CALCIUM [Concomitant]
     Active Substance: CALCIUM
     Indication: SUPPLEMENTATION THERAPY
     Dosage: 500 MG, BID
     Route: 048
     Dates: start: 201001
  2. SALOFALK                           /00000301/ [Concomitant]
     Active Substance: MESALAMINE
     Indication: COLITIS ULCERATIVE
     Dosage: 4 G, UNK
     Route: 054
     Dates: start: 20130410
  3. VITAMIN D [Concomitant]
     Active Substance: CHOLECALCIFEROL
     Indication: SUPPLEMENTATION THERAPY
     Dosage: 800 IU, QD
     Route: 048
     Dates: start: 201001
  4. ADVIL ES [Concomitant]
     Indication: HEADACHE
     Dosage: 2 DF, UNK
     Route: 048
     Dates: start: 1990
  5. FERAMAX [Concomitant]
     Active Substance: IRON\POLYSACCHARIDES
     Indication: SERUM FERRITIN DECREASED
     Dosage: 150 MG, QD
     Route: 048
     Dates: start: 20130117
  6. IMURAN [Concomitant]
     Active Substance: AZATHIOPRINE
     Indication: COLITIS ULCERATIVE
     Dosage: 275 MG, QD
     Route: 048
     Dates: start: 20120619
  7. TYLENOL [Concomitant]
     Active Substance: ACETAMINOPHEN
     Indication: HEADACHE
     Dosage: 2 DF, UNK
     Route: 048
     Dates: start: 201205
  8. OLMETEC [Concomitant]
     Active Substance: OLMESARTAN MEDOXOMIL
     Indication: HYPERTENSION
     Dosage: 20 MG, QD
     Route: 048
     Dates: start: 20150630
  9. TECTA [Concomitant]
     Active Substance: PANTOPRAZOLE MAGNESIUM
     Dosage: 40 MG, QD
     Route: 048
     Dates: start: 20110919
  10. VEDOLIZUMAB [Suspect]
     Active Substance: VEDOLIZUMAB
     Indication: COLITIS ULCERATIVE
     Dosage: 300 MG, Q4WEEKS
     Route: 042
     Dates: start: 20100110, end: 20151021

REACTIONS (1)
  - Renal cell carcinoma [Recovered/Resolved]

NARRATIVE: CASE EVENT DATE: 20150925
